FAERS Safety Report 10994630 (Version 2)
Quarter: 2015Q2

REPORT INFORMATION
  Report Type: Spontaneous
  Country: US (occurrence: US)
  Receive Date: 20150407
  Receipt Date: 20150505
  Transmission Date: 20150821
  Serious: Yes (Hospitalization)
  Sender: FDA-Public Use
  Company Number: US-009507513-1412USA001382

PATIENT
  Sex: Male

DRUGS (7)
  1. TICE BCG [Suspect]
     Active Substance: BACILLUS CALMETTE-GUERIN SUBSTRAIN TICE LIVE ANTIGEN
     Indication: BLADDER CANCER
     Dosage: 1 DF(VIAL),QW, FIRST SERIES OF 6 WERE COMPLETED
     Route: 043
     Dates: start: 201409
  2. LIPITOR [Concomitant]
     Active Substance: ATORVASTATIN CALCIUM
  3. PROPRANOLOL HYDROCHLORIDE. [Concomitant]
     Active Substance: PROPRANOLOL HYDROCHLORIDE
  4. ALTHIAZIDE [Concomitant]
     Active Substance: ALTHIAZIDE
  5. ASPIRIN. [Concomitant]
     Active Substance: ASPIRIN
     Dosage: UNKNOWN
  6. TICE BCG [Suspect]
     Active Substance: BACILLUS CALMETTE-GUERIN SUBSTRAIN TICE LIVE ANTIGEN
     Dosage: UNK, COMPLETED 2 IN THIS SERIES OF 6
     Route: 043
     Dates: start: 20150321
  7. PRIMIDONE. [Concomitant]
     Active Substance: PRIMIDONE

REACTIONS (5)
  - Drug dose omission [Unknown]
  - Nocturia [Recovered/Resolved]
  - Bladder operation [Unknown]
  - Blood urine [Recovered/Resolved]
  - Inappropriate schedule of drug administration [Unknown]

NARRATIVE: CASE EVENT DATE: 2014
